FAERS Safety Report 21188212 (Version 1)
Quarter: 2022Q3

REPORT INFORMATION
  Report Type: Spontaneous
  Country: FR (occurrence: FR)
  Receive Date: 20220809
  Receipt Date: 20220809
  Transmission Date: 20221027
  Serious: Yes (Other)
  Sender: FDA-Public Use
  Company Number: FR-AUROBINDO-AUR-APL-2022-026065

PATIENT
  Age: 90 Year
  Sex: Male

DRUGS (5)
  1. OLANZAPINE [Suspect]
     Active Substance: OLANZAPINE
     Indication: Chorea
     Dosage: 7.5 MILLIGRAM, ONCE A DAY (FOR 1 WEEK)
     Route: 065
  2. OLANZAPINE [Suspect]
     Active Substance: OLANZAPINE
     Indication: Ballismus
  3. TETRABENAZINE [Suspect]
     Active Substance: TETRABENAZINE
     Indication: Ballismus
     Dosage: 75 MILLIGRAM, ONCE A DAY (FOR 3 WEEKS)
     Route: 065
  4. TETRABENAZINE [Suspect]
     Active Substance: TETRABENAZINE
     Indication: Chorea
  5. WARFARIN [Concomitant]
     Active Substance: WARFARIN
     Indication: International normalised ratio increased
     Dosage: UNK
     Route: 065

REACTIONS (3)
  - Suicidal ideation [Unknown]
  - Depressed mood [Unknown]
  - Drug ineffective [Unknown]
